FAERS Safety Report 19749373 (Version 1)
Quarter: 2021Q3

REPORT INFORMATION
  Report Type: Spontaneous
  Country: US (occurrence: US)
  Receive Date: 20210824
  Receipt Date: 20210824
  Transmission Date: 20211014
  Serious: No
  Sender: FDA-Public Use
  Company Number: None

PATIENT
  Sex: Female

DRUGS (1)
  1. TASIGNA [Suspect]
     Active Substance: NILOTINIB
     Indication: ILLNESS
     Route: 048

REACTIONS (5)
  - Constipation [None]
  - Rash [None]
  - Hair texture abnormal [None]
  - Alopecia [None]
  - Therapy change [None]
